FAERS Safety Report 16917957 (Version 2)
Quarter: 2019Q4

REPORT INFORMATION
  Report Type: Spontaneous
  Country: FR (occurrence: FR)
  Receive Date: 20191015
  Receipt Date: 20191225
  Transmission Date: 20200122
  Serious: Yes (Other)
  Sender: FDA-Public Use
  Company Number: FR-TEVA-2019-FR-1120626

PATIENT
  Age: 82 Year
  Sex: Female

DRUGS (1)
  1. AMOXICILLINE [Suspect]
     Active Substance: AMOXICILLIN
     Indication: BRONCHITIS
     Dosage: UNINFORMED
     Route: 048
     Dates: start: 20180306, end: 20180313

REACTIONS (1)
  - Fixed eruption [Recovered/Resolved with Sequelae]

NARRATIVE: CASE EVENT DATE: 20180310
